FAERS Safety Report 21143577 (Version 1)
Quarter: 2022Q3

REPORT INFORMATION
  Report Type: Spontaneous
  Country: US (occurrence: None)
  Receive Date: 20220728
  Receipt Date: 20220728
  Transmission Date: 20221027
  Serious: Yes (unspecified)
  Sender: FDA-Public Use
  Company Number: None

PATIENT
  Age: 48 Year
  Sex: Female
  Weight: 65.25 kg

DRUGS (7)
  1. TROKENDI XR [Suspect]
     Active Substance: TOPIRAMATE
     Indication: Migraine
     Dosage: OTHER QUANTITY : 1 CAPSULE(S);?FREQUENCY : DAILY;?
     Route: 048
     Dates: start: 20201005
  2. DEVICE [Concomitant]
     Active Substance: DEVICE
  3. GABAPENTIN [Concomitant]
     Active Substance: GABAPENTIN
  4. METHADONE [Concomitant]
     Active Substance: METHADONE HYDROCHLORIDE
  5. ASPIRIN [Concomitant]
     Active Substance: ASPIRIN
  6. ATORVASTATIN [Concomitant]
     Active Substance: ATORVASTATIN
  7. RIZATRIPTAN [Concomitant]
     Active Substance: RIZATRIPTAN

REACTIONS (4)
  - Alopecia [None]
  - Weight decreased [None]
  - Memory impairment [None]
  - Drug effect less than expected [None]

NARRATIVE: CASE EVENT DATE: 20211201
